FAERS Safety Report 5117572-4 (Version None)
Quarter: 2006Q3

REPORT INFORMATION
  Report Type: 
  Country: None (occurrence: None)
  Receive Date: 20060929
  Receipt Date: 20060918
  Transmission Date: 20061208
  Serious: Yes (Other)
  Sender: FDA-Public Use
  Company Number: AU-ROCHE-463632

PATIENT
  Age: 37 Year
  Sex: Female
  Weight: 50.4 kg

DRUGS (4)
  1. PEGASYS [Suspect]
     Indication: DRUG USE FOR UNKNOWN INDICATION
     Route: 065
     Dates: start: 20060914, end: 20060914
  2. MOCLOBEMIDE [Concomitant]
     Dates: start: 20060615
  3. OROXINE [Concomitant]
     Dates: start: 19940615
  4. PANAFEN [Concomitant]
     Dosage: REPORTED AS PANAFEN PLUS. DOSAGE REGIMEN REPORTED AS ONE TABLET.
     Dates: start: 20050615

REACTIONS (3)
  - INJECTION SITE REACTION [None]
  - THROAT TIGHTNESS [None]
  - URTICARIA [None]
